FAERS Safety Report 9065573 (Version 1)
Quarter: 2013Q1

REPORT INFORMATION
  Report Type: Report from Study
  Country: US (occurrence: US)
  Receive Date: 20130130
  Receipt Date: 20130130
  Transmission Date: 20140127
  Serious: No
  Sender: FDA-Public Use
  Company Number: US-ABBOTT-12P-163-0976081-00

PATIENT
  Age: 64 Year
  Sex: Female

DRUGS (10)
  1. HUMIRA [Suspect]
     Indication: RHEUMATOID ARTHRITIS
  2. NEXIUM [Concomitant]
     Indication: DYSPEPSIA
  3. TRAMADOL [Concomitant]
     Indication: RHEUMATOID ARTHRITIS
  4. METHOTREXATE [Concomitant]
     Indication: RHEUMATOID ARTHRITIS
  5. PLAQUENIL [Concomitant]
     Indication: RHEUMATOID ARTHRITIS
  6. TRIAMTERENE [Concomitant]
     Indication: HYPERTENSION
  7. TRI ESTROGEN [Concomitant]
     Indication: HOT FLUSH
  8. FISH OIL [Concomitant]
     Indication: PRODUCT USED FOR UNKNOWN INDICATION
  9. FOLIC ACID [Concomitant]
     Indication: PRODUCT USED FOR UNKNOWN INDICATION
  10. VITAMIN D [Concomitant]
     Indication: PRODUCT USED FOR UNKNOWN INDICATION

REACTIONS (7)
  - Asthenia [Not Recovered/Not Resolved]
  - Oropharyngeal pain [Not Recovered/Not Resolved]
  - Sinusitis [Not Recovered/Not Resolved]
  - Sinus congestion [Not Recovered/Not Resolved]
  - Myalgia [Not Recovered/Not Resolved]
  - Rhinorrhoea [Not Recovered/Not Resolved]
  - Drug dose omission [Unknown]
